FAERS Safety Report 23769398 (Version 1)
Quarter: 2024Q2

REPORT INFORMATION
  Report Type: Spontaneous
  Country: AE (occurrence: None)
  Receive Date: 20240420
  Receipt Date: 20240420
  Transmission Date: 20240716
  Serious: Yes (Hospitalization, Disabling, Other)
  Sender: FDA-Public Use
  Company Number: None

PATIENT
  Age: 34 Year
  Sex: Male
  Weight: 76 kg

DRUGS (6)
  1. INVEGA TRINZA [Suspect]
     Active Substance: PALIPERIDONE PALMITATE
     Indication: Drug therapy
     Dosage: OTHER FREQUENCY : ONCE EVERY 12 WEEK;?
     Route: 030
     Dates: start: 20231024
  2. INVEGA [Concomitant]
     Active Substance: PALIPERIDONE
  3. INVEGA TRINZA [Concomitant]
     Active Substance: PALIPERIDONE PALMITATE
  4. FYBOGEL [Concomitant]
     Active Substance: HERBALS\PLANTAGO OVATA SEED
  5. FIBER [Concomitant]
  6. UNSPECIFIED INGREDIENT [Concomitant]
     Active Substance: UNSPECIFIED INGREDIENT

REACTIONS (5)
  - Constipation [None]
  - Sexual abstinence [None]
  - Prostatic pain [None]
  - Blood pressure increased [None]
  - Dental caries [None]

NARRATIVE: CASE EVENT DATE: 20231101
